FAERS Safety Report 4915883-6 (Version None)
Quarter: 2006Q1

REPORT INFORMATION
  Report Type: 
  Country: None (occurrence: None)
  Receive Date: 20060214
  Receipt Date: 20060123
  Transmission Date: 20060701
  Serious: Yes (Hospitalization)
  Sender: FDA-Public Use
  Company Number: US_0510122986

PATIENT
  Age: 39 Year
  Sex: Female
  Weight: 90.2 kg

DRUGS (10)
  1. ZYPREXA [Suspect]
     Indication: SLEEP DISORDER
     Dosage: 2.5 MG, EACH EVENING, ORAL; SEE IMAGE
     Route: 048
     Dates: start: 20000312, end: 20000614
  2. ZYPREXA [Suspect]
     Indication: SLEEP DISORDER
     Dosage: 2.5 MG, EACH EVENING, ORAL; SEE IMAGE
     Route: 048
     Dates: start: 20000614
  3. ZYPREXA [Suspect]
     Indication: SLEEP DISORDER
     Dosage: 2.5 MG, EACH EVENING, ORAL; SEE IMAGE
     Route: 048
     Dates: start: 20000725
  4. PROZAC [Concomitant]
  5. NEURONTIN [Concomitant]
  6. CELEXA [Concomitant]
  7. XANAX /USA/ (ALPRAZOLAM) [Concomitant]
  8. VASOTEC [Concomitant]
  9. PAXIL (PAROXETINE HYDROCHLORIDE) [Concomitant]
  10. DEPAKOTE [Concomitant]

REACTIONS (3)
  - DIABETES MELLITUS [None]
  - DIABETIC NEUROPATHY [None]
  - WEIGHT INCREASED [None]
